FAERS Safety Report 9439202 (Version 1)
Quarter: 2013Q3

REPORT INFORMATION
  Report Type: Spontaneous
  Country: US (occurrence: US)
  Receive Date: 20130803
  Receipt Date: 20130803
  Transmission Date: 20140515
  Serious: No
  Sender: FDA-Public Use
  Company Number: US-009507513-1307USA004251

PATIENT
  Age: 87 Year
  Sex: Female

DRUGS (2)
  1. COSOPT PF [Suspect]
     Indication: INTRAOCULAR PRESSURE INCREASED
     Route: 047
  2. COSOPT PF [Suspect]
     Indication: GLAUCOMA

REACTIONS (2)
  - Eye irritation [Unknown]
  - Product quality issue [Unknown]
